FAERS Safety Report 5158089-0 (Version None)
Quarter: 2006Q4

REPORT INFORMATION
  Report Type: 
  Country: None (occurrence: None)
  Receive Date: 20061116
  Receipt Date: 20061103
  Transmission Date: 20070319
  Serious: Yes (Other)
  Sender: FDA-Public Use
  Company Number: 2006124242

PATIENT
  Age: 58 Year
  Sex: Male
  Weight: 110 kg

DRUGS (5)
  1. SUTENT [Suspect]
     Indication: RENAL CELL CARCINOMA STAGE UNSPECIFIED
     Dosage: 50 MG
     Dates: start: 20060918
  2. DICLOFENAC SODIUM [Concomitant]
  3. DELTIASONA B (METHYLPREDNISOLONE) [Concomitant]
  4. MORPHINE [Concomitant]
  5. RELIVERAN (METOCLOPRAMIDE) [Concomitant]

REACTIONS (5)
  - BLOOD PRESSURE DIASTOLIC INCREASED [None]
  - HAEMATOMA [None]
  - PAIN [None]
  - RED BLOOD CELL COUNT DECREASED [None]
  - WHITE BLOOD CELL COUNT DECREASED [None]
